FAERS Safety Report 5095369-1 (Version None)
Quarter: 2006Q3

REPORT INFORMATION
  Report Type: 
  Country: None (occurrence: None)
  Receive Date: 20060901
  Receipt Date: 20060821
  Transmission Date: 20061208
  Serious: Yes (Hospitalization, Other)
  Sender: FDA-Public Use
  Company Number: PHBS2006AT12697

PATIENT
  Age: 21 Year
  Sex: Female

DRUGS (7)
  1. CYCLOSPORINE [Suspect]
     Indication: COLITIS ULCERATIVE
     Dosage: 2 MG/KG/DAY
     Route: 042
  2. THIOGUANINE [Concomitant]
     Dosage: 40 MG/D
  3. MESALAMINE [Concomitant]
     Dosage: 2 G/D
  4. SERTRALINE [Concomitant]
     Dosage: 50 MG/D
  5. STEROIDS NOS [Concomitant]
     Dosage: 50 MG/D
     Route: 048
  6. PREDNISOLONE [Concomitant]
     Dosage: 75 MG/D
     Route: 042
  7. CYCLOSPORINE [Suspect]
     Dosage: 100 MG, BID
     Route: 048

REACTIONS (6)
  - CAESAREAN SECTION [None]
  - DRUG EXPOSURE DURING PREGNANCY [None]
  - FOETAL GROWTH RETARDATION [None]
  - HYPERTRICHOSIS [None]
  - PREMATURE BABY [None]
  - PREMATURE RUPTURE OF MEMBRANES [None]
